FAERS Safety Report 10094500 (Version 1)
Quarter: 2014Q2

REPORT INFORMATION
  Report Type: Spontaneous
  Country: GB (occurrence: None)
  Receive Date: 20140418
  Receipt Date: 20140418
  Transmission Date: 20141212
  Serious: Yes (Other)
  Sender: FDA-Public Use
  Company Number: SYM-2014-19797

PATIENT
  Age: 62 Year
  Sex: Female

DRUGS (5)
  1. METRONIDAZOLE (METRONIDAZOLE) [Suspect]
     Indication: TOOTH INFECTION
     Route: 048
     Dates: start: 20140324, end: 20140326
  2. METFORMIN (METFORMIN) [Concomitant]
  3. CO-CODAMOL (PANADEINE CO) (CODEINE PHOSPHATE, PARACETAMOL) [Concomitant]
  4. PERINDOPRIL (PERINDOPRIL) [Concomitant]
  5. SIMVASTATIN (SIMVASTATIN) [Concomitant]

REACTIONS (1)
  - Abdominal pain upper [None]
